FAERS Safety Report 6572469-8 (Version None)
Quarter: 2010Q1

REPORT INFORMATION
  Report Type: 
  Country: None (occurrence: None)
  Receive Date: 20100205
  Receipt Date: 20100202
  Transmission Date: 20100710
  Serious: Yes (Other)
  Sender: FDA-Public Use
  Company Number: US-MERCK-1001USA02598

PATIENT
  Age: 18 Year
  Sex: Male

DRUGS (4)
  1. SINGULAIR [Suspect]
     Indication: ASTHMA
     Route: 048
     Dates: start: 19990101, end: 20090401
  2. ALBUTEROL [Concomitant]
     Route: 065
  3. ADDERALL TABLETS [Concomitant]
     Route: 065
  4. LORAZEPAM [Concomitant]
     Route: 065

REACTIONS (3)
  - AGGRESSION [None]
  - HEAD BANGING [None]
  - PHYSICAL ASSAULT [None]
